FAERS Safety Report 9132465 (Version 1)
Quarter: 2013Q1

REPORT INFORMATION
  Report Type: Report from Study
  Country: HU (occurrence: HU)
  Receive Date: 20130301
  Receipt Date: 20130301
  Transmission Date: 20140127
  Serious: Yes (Hospitalization)
  Sender: FDA-Public Use
  Company Number: HU-GLAXOSMITHKLINE-B0740119A

PATIENT
  Age: 70 Year
  Sex: Male
  Weight: 47 kg

DRUGS (4)
  1. LAPATINIB [Suspect]
     Indication: GASTRIC CANCER
     Dosage: 1250MG PER DAY
     Route: 048
     Dates: start: 20110427, end: 20110807
  2. CAPECITABINE [Suspect]
     Indication: GASTRIC CANCER
     Route: 048
     Dates: start: 20110427, end: 20110803
  3. OXALIPLATIN [Suspect]
     Indication: GASTRIC CANCER
     Route: 042
     Dates: start: 20110427
  4. LOPEDIUM [Concomitant]
     Indication: DIARRHOEA
     Dosage: 2MG THREE TIMES PER DAY
     Route: 048
     Dates: start: 20110801

REACTIONS (1)
  - Hypokalaemia [Recovered/Resolved]
